FAERS Safety Report 18730372 (Version 1)
Quarter: 2021Q1

REPORT INFORMATION
  Report Type: Spontaneous
  Country: CA (occurrence: CA)
  Receive Date: 20210112
  Receipt Date: 20210112
  Transmission Date: 20210419
  Serious: Yes (Other)
  Sender: FDA-Public Use
  Company Number: CA-BEH-2021126954

PATIENT
  Age: 68 Year
  Sex: Female

DRUGS (1)
  1. ALBUREX [Suspect]
     Active Substance: ALBUMIN HUMAN
     Dosage: 132 MILLILITER, 1/4 FRACTIONS, TOT
     Route: 065
     Dates: start: 20200726, end: 20200726

REACTIONS (8)
  - Acute pulmonary oedema [Recovered/Resolved]
  - Tachypnoea [Recovered/Resolved]
  - Fluid overload [Unknown]
  - Wheezing [Recovered/Resolved]
  - Tachycardia [Recovered/Resolved]
  - Dyspnoea [Recovered/Resolved]
  - Hypertension [Recovered/Resolved]
  - Chest pain [Recovered/Resolved]

NARRATIVE: CASE EVENT DATE: 20200726
